FAERS Safety Report 9290038 (Version 1)
Quarter: 2013Q2

REPORT INFORMATION
  Report Type: Spontaneous
  Country: AU (occurrence: None)
  Receive Date: 20130510
  Receipt Date: 20130510
  Transmission Date: 20140414
  Serious: Yes (Hospitalization)
  Sender: FDA-Public Use
  Company Number: 1698932

PATIENT
  Age: 48 Year
  Sex: Female
  Weight: 41.4 kg

DRUGS (6)
  1. CARBOPLATIN [Suspect]
     Indication: BREAST CANCER
     Dosage: 500MG (1 WEEK) INTRAVENOUS
     Route: 042
     Dates: start: 20121228
  2. DOCETAXEL [Suspect]
     Indication: BREAST CANCER
     Dosage: 100MG (1WEEK) INTRAVENOUS
     Route: 042
     Dates: start: 20121228
  3. PERTUZUMAB [Suspect]
     Indication: BREAST CANCER
     Dosage: 315 MG (1WEEK) INTRAVENOUS
     Route: 042
     Dates: start: 20121228
  4. (TRASTUZUMAB) [Concomitant]
  5. (DESVENLAFAXINE SUCCINATE) [Concomitant]
  6. CLOPIDOGREL [Suspect]

REACTIONS (3)
  - Cellulitis [None]
  - Neutropenia [None]
  - Haemoglobin decreased [None]
